FAERS Safety Report 5654506-8 (Version None)
Quarter: 2008Q1

REPORT INFORMATION
  Report Type: 
  Country: None (occurrence: None)
  Receive Date: 20080307
  Receipt Date: 20080228
  Transmission Date: 20080703
  Serious: Yes (Hospitalization)
  Sender: FDA-Public Use
  Company Number: FR-WYE-G01160408

PATIENT
  Sex: Female

DRUGS (3)
  1. EFFEXOR [Suspect]
     Indication: MAJOR DEPRESSION
     Dosage: 100 MG TOTAL DAILY
     Route: 048
     Dates: start: 20070906, end: 20070906
  2. EFFEXOR [Suspect]
     Dosage: 150 MG TOTAL DAILY
     Route: 048
     Dates: start: 20070907, end: 20070918
  3. ZOLOFT [Suspect]
     Indication: MAJOR DEPRESSION
     Dosage: 100 MG TOTAL DAILY
     Route: 048
     Dates: start: 20070919, end: 20070924

REACTIONS (3)
  - CHOLESTASIS [None]
  - HEPATITIS [None]
  - PHAEOCHROMOCYTOMA [None]
